FAERS Safety Report 7746445-3 (Version None)
Quarter: 2011Q3

REPORT INFORMATION
  Report Type: 
  Country: None (occurrence: None)
  Receive Date: 20110913
  Receipt Date: 20110906
  Transmission Date: 20111222
  Serious: Yes (Other)
  Sender: FDA-Public Use
  Company Number: US-PFIZER INC-2011194753

PATIENT
  Sex: Male

DRUGS (4)
  1. CAMPTOSAR [Suspect]
     Indication: COLON CANCER
     Dosage: UNK
     Dates: start: 20110712
  2. VITAMIN D [Concomitant]
  3. ERBITUX [Suspect]
     Indication: COLON CANCER
     Dosage: UNK
     Route: 042
     Dates: start: 20110702
  4. MAGNESIUM [Concomitant]

REACTIONS (3)
  - DECREASED APPETITE [None]
  - VOMITING [None]
  - DIARRHOEA [None]
